FAERS Safety Report 20672131 (Version 1)
Quarter: 2022Q2

REPORT INFORMATION
  Report Type: Other
  Country: CN (occurrence: CN)
  Receive Date: 20220405
  Receipt Date: 20220405
  Transmission Date: 20220720
  Serious: Yes (Other)
  Sender: FDA-Public Use
  Company Number: CN-BoehringerIngelheim-2022-BI-161203

PATIENT

DRUGS (2)
  1. ALTEPLASE [Suspect]
     Active Substance: ALTEPLASE
     Indication: Ischaemic stroke
     Dosage: BOLUS OF ALTEPLASE. 0.9 MG/KG, THE MAXIMUM DOSE WAS CONTROLLED WITHIN 90 MG. FIRST, 10% ALTEPLASE WA
     Route: 042
  2. ALTEPLASE [Suspect]
     Active Substance: ALTEPLASE
     Dosage: FOLLOWED BY INTRAVENOUS DRIP OF THE REMAINING 90% ALTEPLASE, WHICH WAS COMPLETED WITHIN 1 HOUR
     Route: 042

REACTIONS (2)
  - Drug ineffective [Unknown]
  - No adverse event [Unknown]
